FAERS Safety Report 13015422 (Version 5)
Quarter: 2017Q3

REPORT INFORMATION
  Report Type: Spontaneous
  Country: IE (occurrence: IE)
  Receive Date: 20161211
  Receipt Date: 20170809
  Transmission Date: 20171127
  Serious: Yes (Death, Hospitalization, Other)
  Sender: FDA-Public Use
  Company Number: PHFR2016IE009718

PATIENT
  Age: 68 Year
  Sex: Male
  Weight: 72 kg

DRUGS (7)
  1. ASPIRIN. [Concomitant]
     Active Substance: ASPIRIN
     Indication: PRODUCT USED FOR UNKNOWN INDICATION
     Dosage: 75 OT, UNK
     Route: 048
  2. LEVOTHYROXINE. [Concomitant]
     Active Substance: LEVOTHYROXINE
     Indication: PRODUCT USED FOR UNKNOWN INDICATION
     Dosage: 25 MG, UNK
     Route: 048
  3. ZOTON [Concomitant]
     Active Substance: LANSOPRAZOLE
     Indication: PRODUCT USED FOR UNKNOWN INDICATION
     Route: 048
  4. DOMPERIDONE [Concomitant]
     Active Substance: DOMPERIDONE
     Indication: PRODUCT USED FOR UNKNOWN INDICATION
     Dosage: 10 MG, UNK
     Route: 048
  5. EUCARDIC [Concomitant]
     Indication: PRODUCT USED FOR UNKNOWN INDICATION
     Dosage: 3.125 OT, BID
     Route: 048
  6. ENTRESTO [Suspect]
     Active Substance: SACUBITRIL\VALSARTAN
     Indication: CARDIAC FAILURE
     Dosage: 50 MG, BID
     Route: 048
     Dates: start: 20160926, end: 20161021
  7. BURINEX [Concomitant]
     Active Substance: BUMETANIDE
     Indication: PRODUCT USED FOR UNKNOWN INDICATION
     Dosage: 3 MG, UNK
     Route: 048

REACTIONS (12)
  - Pneumonia aspiration [Fatal]
  - Chronic kidney disease [Fatal]
  - Lower respiratory tract infection [Fatal]
  - Rectal haemorrhage [Unknown]
  - Melaena [Unknown]
  - Blood creatinine increased [Fatal]
  - Coronary artery disease [Fatal]
  - Sepsis [Unknown]
  - C-reactive protein increased [Unknown]
  - Cardiac failure chronic [Fatal]
  - Chronic obstructive pulmonary disease [Fatal]
  - Hypotension [Unknown]

NARRATIVE: CASE EVENT DATE: 201610
